FAERS Safety Report 8435830-2 (Version None)
Quarter: 2012Q2

REPORT INFORMATION
  Report Type: 
  Country: None (occurrence: None)
  Receive Date: 20120614
  Receipt Date: 20120605
  Transmission Date: 20120825
  Serious: Yes (Hospitalization, Other)
  Sender: FDA-Public Use
  Company Number: BR-ASTRAZENECA-2012SE31737

PATIENT
  Age: 72 Year
  Sex: Female
  Weight: 83 kg

DRUGS (6)
  1. ATACAND HCT [Suspect]
     Dosage: 16/2.5 MG
     Route: 048
  2. METOPROLOL SUCCINATE [Suspect]
     Indication: HYPERTENSION
     Route: 048
     Dates: end: 20120531
  3. ATACAND HCT [Suspect]
     Dosage: 16/2.5 MG HALF TABLET OF CANDESARTAN HALF TABLET OF FELODIPINE
     Route: 048
     Dates: end: 20120501
  4. METOPROLOL SUCCINATE [Suspect]
     Route: 048
     Dates: start: 20120601
  5. ATACAND HCT [Suspect]
     Indication: HYPERTENSION
     Dosage: 16/12.5 MG DAILY
     Route: 048
     Dates: start: 20120501, end: 20120531
  6. ATACAND HCT [Suspect]
     Indication: HYPERTENSION
     Dosage: 16/2.5 MG
     Route: 048

REACTIONS (4)
  - BLOOD PRESSURE DECREASED [None]
  - DRUG INEFFECTIVE [None]
  - INTENTIONAL DRUG MISUSE [None]
  - BLOOD PRESSURE INCREASED [None]
